FAERS Safety Report 14310287 (Version 1)
Quarter: 2017Q4

REPORT INFORMATION
  Report Type: Report from Study
  Country: None (occurrence: US)
  Receive Date: 20171220
  Receipt Date: 20171220
  Transmission Date: 20180321
  Serious: Yes (Death)
  Sender: FDA-Public Use
  Company Number: US-VIFOR (INTERNATIONAL) INC.-VIT-2017-13612

PATIENT
  Age: 61 Year
  Sex: Male

DRUGS (2)
  1. VELTASSA [Suspect]
     Active Substance: PATIROMER
     Indication: HYPERKALAEMIA
     Route: 048
     Dates: start: 20170511
  2. VELTASSA [Suspect]
     Active Substance: PATIROMER
     Dates: start: 201705, end: 201712

REACTIONS (1)
  - Death [Fatal]

NARRATIVE: CASE EVENT DATE: 20171210
